FAERS Safety Report 19330136 (Version 1)
Quarter: 2021Q2

REPORT INFORMATION
  Report Type: Other
  Country: US (occurrence: US)
  Receive Date: 20210528
  Receipt Date: 20210528
  Transmission Date: 20210717
  Serious: Yes (Other)
  Sender: FDA-Public Use
  Company Number: US-DEXPHARM-20210719

PATIENT
  Sex: Female

DRUGS (3)
  1. OMEPRAZOLE. [Interacting]
     Active Substance: OMEPRAZOLE
  2. RANITIDINE. [Interacting]
     Active Substance: RANITIDINE
  3. ATEZOLIZUMAB. [Suspect]
     Active Substance: ATEZOLIZUMAB
     Indication: BREAST CANCER STAGE IV

REACTIONS (2)
  - Drug interaction [Recovered/Resolved]
  - Subacute cutaneous lupus erythematosus [Recovering/Resolving]
